FAERS Safety Report 8485114-1 (Version None)
Quarter: 2012Q3

REPORT INFORMATION
  Report Type: 
  Country: None (occurrence: None)
  Receive Date: 20120703
  Receipt Date: 20120622
  Transmission Date: 20120928
  Serious: Yes (Hospitalization, Other)
  Sender: FDA-Public Use
  Company Number: US-PFIZER INC-2012152425

PATIENT
  Age: 9 Year
  Sex: Male
  Weight: 22.6 kg

DRUGS (7)
  1. METHOTREXATE SODIUM [Suspect]
     Indication: B PRECURSOR TYPE ACUTE LEUKAEMIA
     Dosage: 8-15 MG (AGE BASED DOSING) IT ON DAYS 1 (ORUPTO 72 HOURS PRIOR TO DAY 1) AND 8
     Route: 039
     Dates: start: 20120423, end: 20120501
  2. PEGASPARGASE [Suspect]
     Indication: B PRECURSOR TYPE ACUTE LEUKAEMIA
     Dosage: 2500 IU/M2 IV OVER 1HR ON DAY 3 AND 17
     Route: 042
     Dates: start: 20120423, end: 20120509
  3. DEXAMETHASONE SODIUM PHOSPHATE [Suspect]
     Indication: B PRECURSOR TYPE ACUTE LEUKAEMIA
     Dosage: 10 MG/M2, 2X/DAY PO OR IV ON DAYS 1-5 AND 15-19
     Route: 048
     Dates: start: 20120423, end: 20120511
  4. TEMSIROLIMUS [Suspect]
     Indication: B PRECURSOR TYPE ACUTE LEUKAEMIA
     Dosage: 7.5 MG/M2, IV OVER 30 MINUTES ON DAYS 1,8 AND 15 (MAX DOSE: 15MG)
     Route: 042
     Dates: start: 20120423, end: 20120507
  5. MITOXANTRONE HYDROCHLORIDE [Suspect]
     Indication: B PRECURSOR TYPE ACUTE LEUKAEMIA
     Dosage: 10 MG/M2, IV OVER 30 MINUTES ON DAYS 1 AND 2
     Route: 042
     Dates: start: 20120423, end: 20120424
  6. VINCRISTINE SULFATE [Suspect]
     Indication: B PRECURSOR TYPE ACUTE LEUKAEMIA
     Dosage: 1.5 MG/M2(MAX 2MG) IV PUSH OVER 1-5MINUTES OR INFUSION VIA MINIBAG ON DAYS 1,8,15 AND 22
     Route: 042
     Dates: start: 20120423, end: 20120514
  7. AMPHOTERICIN B [Concomitant]
     Dosage: UNK

REACTIONS (3)
  - LIP INFECTION [None]
  - HYPONATRAEMIA [None]
  - OESOPHAGITIS [None]
